FAERS Safety Report 7504850-4 (Version None)
Quarter: 2011Q2

REPORT INFORMATION
  Report Type: 
  Country: None (occurrence: None)
  Receive Date: 20110526
  Receipt Date: 20110511
  Transmission Date: 20111010
  Serious: Yes (Other)
  Sender: FDA-Public Use
  Company Number: FR-BRISTOL-MYERS SQUIBB COMPANY-15777808

PATIENT
  Age: 58 Year
  Sex: Female

DRUGS (2)
  1. AMARYL [Suspect]
     Dates: start: 20110101, end: 20110508
  2. GLUCOPHAGE [Suspect]
     Dosage: STRENGTH:1000 MG
     Route: 048
     Dates: start: 20110101, end: 20110508

REACTIONS (1)
  - HEPATITIS [None]
